FAERS Safety Report 19616241 (Version 1)
Quarter: 2021Q3

REPORT INFORMATION
  Report Type: Spontaneous
  Country: US (occurrence: US)
  Receive Date: 20210727
  Receipt Date: 20210727
  Transmission Date: 20211014
  Serious: No
  Sender: FDA-Public Use
  Company Number: US-ABBVIE-21K-163-3817962-00

PATIENT

DRUGS (1)
  1. SYNTHROID [Suspect]
     Active Substance: LEVOTHYROXINE SODIUM
     Indication: PRODUCT USED FOR UNKNOWN INDICATION
     Route: 048

REACTIONS (6)
  - Rash papular [Recovered/Resolved]
  - Unevaluable event [Unknown]
  - Weight increased [Unknown]
  - Erythema [Recovered/Resolved]
  - Anxiety [Recovering/Resolving]
  - Cardiac disorder [Unknown]
